FAERS Safety Report 6129173-X (Version None)
Quarter: 2009Q1

REPORT INFORMATION
  Report Type: 
  Country: None (occurrence: None)
  Receive Date: 20090324
  Receipt Date: 20090317
  Transmission Date: 20090719
  Serious: Yes (Other)
  Sender: FDA-Public Use
  Company Number: GB-BAYER-200910370BNE

PATIENT
  Age: 50 Year
  Sex: Female
  Weight: 67 kg

DRUGS (1)
  1. MIRENA [Suspect]
     Indication: MENORRHAGIA
     Route: 015
     Dates: start: 20070801

REACTIONS (1)
  - BREAST CANCER [None]
